FAERS Safety Report 9304409 (Version 7)
Quarter: 2014Q3

REPORT INFORMATION
  Report Type: Spontaneous
  Country: US (occurrence: US)
  Receive Date: 20130522
  Receipt Date: 20140827
  Transmission Date: 20150326
  Serious: Yes (Hospitalization, Disabling, Other)
  Sender: FDA-Public Use
  Company Number: US-009507513-1305USA012334

PATIENT
  Sex: Female
  Weight: 61.22 kg

DRUGS (1)
  1. NUVARING [Suspect]
     Active Substance: ETHINYL ESTRADIOL\ETONOGESTREL
     Indication: CONTRACEPTION
     Dosage: 0.12-0.015 MG, INSERT ONCE EVERY 3 WEEKS, THEN SKIP A WEEK
     Route: 067

REACTIONS (26)
  - Pulmonary hypertension [Not Recovered/Not Resolved]
  - Mammoplasty [Unknown]
  - Migraine [Unknown]
  - Biopsy lung [Unknown]
  - Spinal pain [Unknown]
  - Myopia [Unknown]
  - Astigmatism [Unknown]
  - Pulmonary embolism [Not Recovered/Not Resolved]
  - Emotional disorder [Unknown]
  - Endarterectomy [Unknown]
  - Chest pain [Unknown]
  - Dyspnoea [Unknown]
  - Insomnia [Unknown]
  - Coagulopathy [Unknown]
  - Cervical dysplasia [Unknown]
  - Thrombosis [Unknown]
  - Pulmonary embolism [Unknown]
  - Catheterisation cardiac [Unknown]
  - Pulmonary mass [Unknown]
  - Vena cava filter insertion [Unknown]
  - Ligament sprain [Unknown]
  - Protein C deficiency [Unknown]
  - Pulmonary fibrosis [Not Recovered/Not Resolved]
  - Vertigo [Unknown]
  - Upper respiratory tract infection [Unknown]
  - Chest pain [Unknown]

NARRATIVE: CASE EVENT DATE: 20060531
